FAERS Safety Report 9832987 (Version 1)
Quarter: 2014Q1

REPORT INFORMATION
  Report Type: Spontaneous
  Country: US (occurrence: US)
  Receive Date: 20140121
  Receipt Date: 20140121
  Transmission Date: 20141002
  Serious: Yes (Other)
  Sender: FDA-Public Use
  Company Number: CHPA2014US000865

PATIENT
  Sex: 0

DRUGS (3)
  1. EXCEDRIN UNKNOWN [Suspect]
     Indication: PAIN
     Dosage: UNK, UNK
  2. EXCEDRIN MIGRAINE [Suspect]
     Indication: PAIN
  3. EXCEDRIN MIGRAINE [Suspect]
     Indication: OFF LABEL USE

REACTIONS (1)
  - Depression [Unknown]
